FAERS Safety Report 17237394 (Version 1)
Quarter: 2020Q1

REPORT INFORMATION
  Report Type: Spontaneous
  Country: US (occurrence: US)
  Receive Date: 20200106
  Receipt Date: 20200106
  Transmission Date: 20200409
  Serious: No
  Sender: FDA-Public Use
  Company Number: US-PFIZER INC-2018188393

PATIENT
  Age: 50 Year
  Sex: Female
  Weight: 68.4 kg

DRUGS (4)
  1. PREMPRO [Suspect]
     Active Substance: ESTROGENS, CONJUGATED\MEDROXYPROGESTERONE ACETATE
     Indication: FATIGUE
     Dosage: UNK, EVERY 3RD DAY
     Route: 048
  2. GABAPENTIN. [Concomitant]
     Active Substance: GABAPENTIN
     Indication: NERVE INJURY
     Dosage: 600MG, 3 TIMES DAILY
     Route: 048
     Dates: start: 2015
  3. GABAPENTIN. [Concomitant]
     Active Substance: GABAPENTIN
     Indication: NERVE COMPRESSION
  4. PREMPRO [Suspect]
     Active Substance: ESTROGENS, CONJUGATED\MEDROXYPROGESTERONE ACETATE
     Indication: MENOPAUSAL SYMPTOMS
     Dosage: [0.3 MG CONJUGATED ESTROGENS]/[1.5 MG MEDROXYPROGESTERONE ACETATE], ONCE DAILY
     Route: 048
     Dates: start: 2018

REACTIONS (3)
  - Intentional product misuse [Unknown]
  - Sinus headache [Unknown]
  - Sinusitis [Unknown]

NARRATIVE: CASE EVENT DATE: 201804
